FAERS Safety Report 13609639 (Version 8)
Quarter: 2018Q4

REPORT INFORMATION
  Report Type: Report from Study
  Country: US (occurrence: US)
  Receive Date: 20170602
  Receipt Date: 20181227
  Transmission Date: 20190204
  Serious: Yes (Death, Hospitalization, Other)
  Sender: FDA-Public Use
  Company Number: US-ACTELION-A-US2017-151810

PATIENT
  Age: 66 Year
  Sex: Female
  Weight: 61.22 kg

DRUGS (7)
  1. ADCIRCA [Concomitant]
     Active Substance: TADALAFIL
  2. ADEMPAS [Concomitant]
     Active Substance: RIOCIGUAT
  3. VELETRI [Suspect]
     Active Substance: EPOPROSTENOL
     Dosage: 10 NG/KG, PER MIN
     Route: 042
  4. VELETRI [Suspect]
     Active Substance: EPOPROSTENOL
     Indication: PULMONARY ARTERIAL HYPERTENSION
     Dosage: 15 NG/KG, PER MIN
     Route: 042
  5. VELETRI [Suspect]
     Active Substance: EPOPROSTENOL
     Dosage: 21 NG/KG, PER MIN
     Route: 042
  6. VELETRI [Suspect]
     Active Substance: EPOPROSTENOL
     Dosage: 5 NG/KG, PER MIN
     Route: 042
  7. VELETRI [Suspect]
     Active Substance: EPOPROSTENOL
     Dosage: 19 UNK, UNK
     Route: 042

REACTIONS (22)
  - Hypotension [Unknown]
  - Myalgia [Unknown]
  - Gastrointestinal disorder [Unknown]
  - Encephalopathy [Unknown]
  - Pain in jaw [Unknown]
  - Asthenia [Unknown]
  - Skin abrasion [Unknown]
  - Abdominal pain upper [Unknown]
  - Headache [Unknown]
  - Nausea [Unknown]
  - Diarrhoea [Unknown]
  - Temporomandibular joint syndrome [Unknown]
  - Loss of consciousness [Unknown]
  - Nephrolithiasis [Unknown]
  - Vomiting [Recovered/Resolved]
  - Flushing [Unknown]
  - Dyspnoea exertional [Unknown]
  - Death [Fatal]
  - Transplant evaluation [Unknown]
  - Dehydration [Unknown]
  - Abdominal pain [Unknown]
  - Skin disorder [Unknown]

NARRATIVE: CASE EVENT DATE: 20181218
